FAERS Safety Report 6957894-5 (Version None)
Quarter: 2010Q3

REPORT INFORMATION
  Report Type: 
  Country: None (occurrence: None)
  Receive Date: 20100830
  Receipt Date: 20100830
  Transmission Date: 20110219
  Serious: Yes (Other)
  Sender: FDA-Public Use
  Company Number: None

PATIENT
  Age: 70 Year
  Sex: Female

DRUGS (14)
  1. FLUDEOXYGLUCOSE F 18 [Suspect]
     Indication: POSITRON EMISSION TOMOGRAM
     Dosage: 10MCI +/- 10% EVERY TWO YEARS IV
     Route: 042
     Dates: start: 19970817
  2. FLUDEOXYGLUCOSE F 18 [Suspect]
     Indication: POSITRON EMISSION TOMOGRAM
     Dosage: 10MCI +/- 10% EVERY TWO YEARS IV
     Route: 042
     Dates: start: 19991001
  3. FLUDEOXYGLUCOSE F 18 [Suspect]
     Indication: POSITRON EMISSION TOMOGRAM
     Dosage: 10MCI +/- 10% EVERY TWO YEARS IV
     Route: 042
     Dates: start: 20010926
  4. FLUDEOXYGLUCOSE F 18 [Suspect]
     Indication: POSITRON EMISSION TOMOGRAM
     Dosage: 10MCI +/- 10% EVERY TWO YEARS IV
     Route: 042
     Dates: start: 20031027
  5. FLUDEOXYGLUCOSE F 18 [Suspect]
     Indication: POSITRON EMISSION TOMOGRAM
     Dosage: 5MCI +/- 10% EVERY TWO YEAS IV
     Route: 042
     Dates: start: 20031030
  6. FLUDEOXYGLUCOSE F 18 [Suspect]
     Indication: POSITRON EMISSION TOMOGRAM
     Dosage: 5MCI +/- 10% EVERY TWO YEAS IV
     Route: 042
     Dates: start: 20051012
  7. FLUDEOXYGLUCOSE F 18 [Suspect]
     Indication: POSITRON EMISSION TOMOGRAM
     Dosage: 5MCI +/- 10% EVERY TWO YEAS IV
     Route: 042
     Dates: start: 20080306
  8. ESTRADIOL/PROGESTERONE [Concomitant]
  9. ALEGRA [Concomitant]
  10. DIOVAN [Concomitant]
  11. LOTENSIN [Concomitant]
  12. ARMOUR THYROID TABS [Concomitant]
  13. FOSAMAX [Concomitant]
  14. BONIVA [Concomitant]

REACTIONS (1)
  - BREAST CANCER [None]
